FAERS Safety Report 4469935-8 (Version None)
Quarter: 2004Q4

REPORT INFORMATION
  Report Type: 
  Country: None (occurrence: None)
  Receive Date: 20041008
  Receipt Date: 20040928
  Transmission Date: 20050328
  Serious: Yes (Other)
  Sender: FDA-Public Use
  Company Number: US-JNJFOC-20040201267

PATIENT
  Sex: Female
  Weight: 88.91 kg

DRUGS (13)
  1. ORTHO EVRA [Suspect]
     Indication: CONTRACEPTION
     Route: 062
     Dates: end: 20040105
  2. BISOPROLOL FUMARATE [Concomitant]
     Indication: HYPERTENSION
     Route: 049
     Dates: end: 20040123
  3. LABETALOL [Concomitant]
     Route: 065
     Dates: start: 20010123
  4. LABETALOL [Concomitant]
     Indication: HYPERTENSION
     Route: 065
     Dates: start: 20010123
  5. PRENATAL VITAMINS [Concomitant]
     Route: 065
     Dates: start: 20040123
  6. PRENATAL VITAMINS [Concomitant]
     Route: 065
     Dates: start: 20040123
  7. PRENATAL VITAMINS [Concomitant]
     Route: 065
     Dates: start: 20040123
  8. PRENATAL VITAMINS [Concomitant]
     Route: 065
     Dates: start: 20040123
  9. PRENATAL VITAMINS [Concomitant]
     Route: 065
     Dates: start: 20040123
  10. PRENATAL VITAMINS [Concomitant]
     Route: 065
     Dates: start: 20040123
  11. PRENATAL VITAMINS [Concomitant]
     Route: 065
     Dates: start: 20040123
  12. PRENATAL VITAMINS [Concomitant]
     Route: 065
     Dates: start: 20040123
  13. MAGNESIUM GLUCONATE [Concomitant]
     Route: 049
     Dates: start: 20040401, end: 20040808

REACTIONS (3)
  - DRUG EXPOSURE DURING PREGNANCY [None]
  - PREMATURE LABOUR [None]
  - UNINTENDED PREGNANCY [None]
